FAERS Safety Report 8212404-X (Version None)
Quarter: 2012Q1

REPORT INFORMATION
  Report Type: 
  Country: None (occurrence: None)
  Receive Date: 20120228
  Receipt Date: 20110616
  Transmission Date: 20120608
  Serious: Yes (Other)
  Sender: FDA-Public Use
  Company Number: US201103005011

PATIENT
  Age: 57 Year
  Sex: Female
  Weight: 59 kg

DRUGS (1)
  1. OLANZAPINE [Suspect]
     Dosage: 210 MG, INTRAMUSCULAR
     Route: 030
     Dates: start: 20110311

REACTIONS (9)
  - AGITATION [None]
  - DISORIENTATION [None]
  - ASTHENIA [None]
  - DEPRESSED LEVEL OF CONSCIOUSNESS [None]
  - DIZZINESS [None]
  - SEDATION [None]
  - ANXIETY [None]
  - CONFUSIONAL STATE [None]
  - COGNITIVE DISORDER [None]
